FAERS Safety Report 22037905 (Version 3)
Quarter: 2023Q1

REPORT INFORMATION
  Report Type: Spontaneous
  Country: US (occurrence: US)
  Receive Date: 20230227
  Receipt Date: 20230331
  Transmission Date: 20230418
  Serious: No
  Sender: FDA-Public Use
  Company Number: US-VIIV HEALTHCARE LIMITED-US2023AMR016452

PATIENT
  Sex: Male

DRUGS (2)
  1. RILPIVIRINE [Suspect]
     Active Substance: RILPIVIRINE
     Indication: Product used for unknown indication
     Dosage: UNK UNK, Z (600 MG/900 MG EVERY 2 MONTHS), 2X3M
     Route: 030
  2. CABOTEGRAVIR [Suspect]
     Active Substance: CABOTEGRAVIR
     Indication: Product used for unknown indication
     Dosage: UNK UNK, Z (600 MG/900 MG EVERY 2 MONTHS), 2X3M
     Route: 030

REACTIONS (4)
  - Underdose [Unknown]
  - Poor quality product administered [Unknown]
  - Product use issue [Unknown]
  - Product complaint [Unknown]
